FAERS Safety Report 9692743 (Version 3)
Quarter: 2014Q1

REPORT INFORMATION
  Report Type: Spontaneous
  Country: IT (occurrence: IT)
  Receive Date: 20131118
  Receipt Date: 20140123
  Transmission Date: 20141002
  Serious: Yes (Life-Threatening, Hospitalization)
  Sender: FDA-Public Use
  Company Number: IT-ROCHE-1304393

PATIENT
  Age: 66 Year
  Sex: Female
  Weight: 60 kg

DRUGS (9)
  1. AVASTIN [Suspect]
     Indication: PRODUCT USED FOR UNKNOWN INDICATION
     Route: 042
     Dates: start: 20130725, end: 20130725
  2. PACLITAXEL [Concomitant]
     Route: 042
     Dates: start: 20130725, end: 20130725
  3. PACLITAXEL [Concomitant]
     Dosage: 28-DAY CYCLES WITH ADMINISTRATION ON DAYS 1, 8, 15
     Route: 065
     Dates: start: 20130515
  4. PACLITAXEL [Concomitant]
     Route: 065
     Dates: start: 20130910
  5. SOLDESAM [Concomitant]
     Indication: PROPHYLAXIS OF NAUSEA AND VOMITING
     Route: 042
     Dates: start: 20130725, end: 20130725
  6. OMEPRAZOLE [Concomitant]
     Route: 065
  7. BISOPROLOL [Concomitant]
     Route: 065
  8. FRUSEMIDE [Concomitant]
     Route: 065
  9. PREDNISONE [Concomitant]
     Route: 065

REACTIONS (2)
  - Respiratory failure [Recovered/Resolved]
  - Microembolism [Recovering/Resolving]
